FAERS Safety Report 8508909-4 (Version None)
Quarter: 2012Q3

REPORT INFORMATION
  Report Type: 
  Country: None (occurrence: None)
  Receive Date: 20120713
  Receipt Date: 20120702
  Transmission Date: 20120928
  Serious: No
  Sender: FDA-Public Use
  Company Number: US-JNJFOC-20120702632

PATIENT
  Age: 54 Year
  Sex: Female

DRUGS (2)
  1. INVEGA SUSTENNA [Suspect]
     Indication: PRODUCT USED FOR UNKNOWN INDICATION
     Dosage: PARTIAL DOSE OF 234 MG
     Route: 030
     Dates: start: 20120101
  2. INVEGA SUSTENNA [Suspect]
     Route: 030
     Dates: start: 20120617

REACTIONS (1)
  - INCORRECT DOSE ADMINISTERED [None]
